FAERS Safety Report 8997736 (Version 1)
Quarter: 2013Q1

REPORT INFORMATION
  Report Type: Spontaneous
  Country: US (occurrence: US)
  Receive Date: 20130104
  Receipt Date: 20130104
  Transmission Date: 20140127
  Serious: Yes (Hospitalization)
  Sender: FDA-Public Use
  Company Number: US-INCYTE CORPORATION-2012IN002736

PATIENT
  Age: 77 Year
  Sex: Male

DRUGS (5)
  1. JAKAFI [Suspect]
     Dosage: 15 MG, BID
     Route: 048
     Dates: start: 201202
  2. PANTOPRAZOLE [Concomitant]
     Dosage: 40 MG, UNK
  3. SUCRALFATE [Concomitant]
     Dosage: 1 G, UNK
  4. SPIRONOLACTONE [Concomitant]
  5. LEVOTHYROXINE [Concomitant]
     Dosage: 200 MG, UNK

REACTIONS (1)
  - Diverticulitis [Unknown]
